FAERS Safety Report 25528939 (Version 6)
Quarter: 2025Q3

REPORT INFORMATION
  Report Type: Spontaneous
  Country: CO (occurrence: CO)
  Receive Date: 20250708
  Receipt Date: 20250813
  Transmission Date: 20251020
  Serious: No
  Sender: PFIZER
  Company Number: CO-PFIZER INC-PV202500079344

PATIENT
  Age: 10 Year
  Sex: Female

DRUGS (2)
  1. GENOTROPIN [Suspect]
     Active Substance: SOMATROPIN
     Indication: Short stature
     Dosage: 0.6 MG, ALTERNATE DAY (ALTERNATING DOSES OF 0.6 MG AND 0.8 MG, BEFORE BEDTIME)
     Dates: start: 2025, end: 2025
  2. GENOTROPIN [Suspect]
     Active Substance: SOMATROPIN
     Dosage: 0.8 MG, ALTERNATE DAY (ALTERNATING DOSES OF 0.6 MG AND 0.8 MG)
     Dates: start: 2025, end: 2025

REACTIONS (3)
  - Device delivery system issue [Recovered/Resolved with Sequelae]
  - Wrong technique in device usage process [Recovered/Resolved with Sequelae]
  - Incorrect dose administered by device [Recovered/Resolved with Sequelae]

NARRATIVE: CASE EVENT DATE: 20250101
